FAERS Safety Report 5239060-7 (Version None)
Quarter: 2007Q1

REPORT INFORMATION
  Report Type: 
  Country: None (occurrence: None)
  Receive Date: 20070209
  Receipt Date: 20070202
  Transmission Date: 20070707
  Serious: Yes (Hospitalization, Other)
  Sender: FDA-Public Use
  Company Number: GXKR2007CA01338

PATIENT
  Age: 27 Year
  Sex: Female

DRUGS (2)
  1. NITROFURANTOIN [Suspect]
     Indication: URINARY TRACT INFECTION
     Dosage: 100 MG, BID, ORAL
     Route: 048
  2. PREDNISONE TAB [Concomitant]

REACTIONS (14)
  - BLOOD LACTATE DEHYDROGENASE INCREASED [None]
  - BLOOD PRESSURE INCREASED [None]
  - CHEST PAIN [None]
  - DRUG EXPOSURE DURING PREGNANCY [None]
  - HAEMOPTYSIS [None]
  - HYPERCAPNIA [None]
  - HYPERDYNAMIC PRECORDIUM [None]
  - HYPOXIA [None]
  - LEUKOCYTOSIS [None]
  - MICROCYTIC ANAEMIA [None]
  - NEUTROPHILIA [None]
  - PITTING OEDEMA [None]
  - PNEUMONITIS [None]
  - RED BLOOD CELL SEDIMENTATION RATE INCREASED [None]
